FAERS Safety Report 18054463 (Version 1)
Quarter: 2020Q3

REPORT INFORMATION
  Report Type: Spontaneous
  Country: CN (occurrence: CN)
  Receive Date: 20200722
  Receipt Date: 20200722
  Transmission Date: 20201103
  Serious: Yes (Other)
  Sender: FDA-Public Use
  Company Number: CN-CHEPLA-C20202143

PATIENT
  Age: 44 Year
  Sex: Male

DRUGS (4)
  1. CYMEVENE [Suspect]
     Active Substance: GANCICLOVIR
     Indication: PNEUMONIA
     Route: 065
     Dates: start: 20191231
  2. ROCEPHIN [Suspect]
     Active Substance: CEFTRIAXONE SODIUM
     Indication: PNEUMONIA
     Route: 065
     Dates: start: 20191231
  3. MOXIFLOXACIN. [Concomitant]
     Active Substance: MOXIFLOXACIN
     Indication: PNEUMONIA
  4. VORICONAZOLE. [Concomitant]
     Active Substance: VORICONAZOLE
     Indication: PNEUMONIA

REACTIONS (3)
  - Pyrexia [Recovered/Resolved]
  - Computerised tomogram thorax abnormal [Recovering/Resolving]
  - Product use in unapproved indication [Unknown]
